FAERS Safety Report 7648356-0 (Version None)
Quarter: 2011Q3

REPORT INFORMATION
  Report Type: 
  Country: None (occurrence: None)
  Receive Date: 20110801
  Receipt Date: 20110720
  Transmission Date: 20111222
  Serious: Yes (Other)
  Sender: FDA-Public Use
  Company Number: GB-PFIZER INC-2009251695

PATIENT
  Age: 71 Year
  Sex: Male

DRUGS (2)
  1. DICLOFENAC SODIUM AND MISOPROSTOL [Suspect]
     Indication: OSTEOARTHRITIS
     Dosage: 50 MG, ONCE EVERY 3 DAYS
     Route: 048
     Dates: start: 20080305
  2. ACETYLSALICYLIC ACID [Concomitant]
     Indication: MYOCARDIAL ISCHAEMIA
     Dosage: 75 MG, 1X/DAY

REACTIONS (2)
  - CORONARY ARTERY DISEASE [None]
  - MYOCARDIAL ISCHAEMIA [None]
